FAERS Safety Report 14403580 (Version 2)
Quarter: 2018Q1

REPORT INFORMATION
  Report Type: Spontaneous
  Country: TR (occurrence: TR)
  Receive Date: 20180117
  Receipt Date: 20180215
  Transmission Date: 20180509
  Serious: Yes (Other)
  Sender: FDA-Public Use
  Company Number: TR-JNJFOC-20180117189

PATIENT
  Age: 7 Decade
  Sex: Male
  Weight: 100 kg

DRUGS (1)
  1. STELARA [Suspect]
     Active Substance: USTEKINUMAB
     Indication: PSORIASIS
     Route: 058
     Dates: start: 20161101, end: 20171110

REACTIONS (1)
  - Chronic lymphocytic leukaemia [Recovering/Resolving]

NARRATIVE: CASE EVENT DATE: 20180115
